FAERS Safety Report 4314338-X (Version None)
Quarter: 2004Q1

REPORT INFORMATION
  Report Type: 
  Country: None (occurrence: None)
  Receive Date: 20040308
  Receipt Date: 20040224
  Transmission Date: 20041129
  Serious: Yes (Hospitalization, Other)
  Sender: FDA-Public Use
  Company Number: 2004012620

PATIENT
  Sex: Female
  Weight: 60.782 kg

DRUGS (5)
  1. ZOLOFT [Suspect]
     Indication: DEPRESSION
     Dosage: 50 MG (DAILY)
     Dates: start: 19940701
  2. LEVOTHYROXINE SODIUM [Concomitant]
  3. AMLODIPINE BESYLATE [Concomitant]
  4. HYDROCHLOROTHIAZIDE [Concomitant]
  5. ATORVASTATIN CALCIUM [Concomitant]

REACTIONS (6)
  - ARRHYTHMIA [None]
  - CYSTOPEXY [None]
  - DISCOMFORT [None]
  - INTESTINAL OPERATION [None]
  - PANIC ATTACK [None]
  - RECTAL PROLAPSE REPAIR [None]
